FAERS Safety Report 16916896 (Version 2)
Quarter: 2020Q1

REPORT INFORMATION
  Report Type: Spontaneous
  Country: US (occurrence: US)
  Receive Date: 20191015
  Receipt Date: 20200303
  Transmission Date: 20200409
  Serious: Yes (Other)
  Sender: FDA-Public Use
  Company Number: US-BEH-2019107948

PATIENT
  Age: 69 Year
  Sex: Female

DRUGS (2)
  1. HAEGARDA [Suspect]
     Active Substance: HUMAN C1-ESTERASE INHIBITOR
     Dosage: 5000 INTERNATIONAL UNIT, FREQUENCY: OTHER
     Route: 058
  2. HAEGARDA [Suspect]
     Active Substance: HUMAN C1-ESTERASE INHIBITOR
     Dosage: 5000 INTERNATIONAL UNIT, FREQUENCY: OTHER
     Route: 058
     Dates: start: 201802

REACTIONS (3)
  - Leukaemia [Unknown]
  - Laryngitis [Unknown]
  - Cough [Unknown]

NARRATIVE: CASE EVENT DATE: 20191008
